FAERS Safety Report 18681493 (Version 2)
Quarter: 2021Q1

REPORT INFORMATION
  Report Type: Spontaneous
  Country: US (occurrence: US)
  Receive Date: 20201229
  Receipt Date: 20210101
  Transmission Date: 20210419
  Serious: No
  Sender: FDA-Public Use
  Company Number: US-TEVA-2020-US-1862681

PATIENT
  Sex: Female

DRUGS (1)
  1. TESTOSTERONE. [Suspect]
     Active Substance: TESTOSTERONE
     Indication: HORMONE LEVEL ABNORMAL
     Route: 065

REACTIONS (7)
  - Asthenia [Not Recovered/Not Resolved]
  - Arthralgia [Not Recovered/Not Resolved]
  - Product prescribing error [Unknown]
  - Irritability [Not Recovered/Not Resolved]
  - Drug ineffective for unapproved indication [Unknown]
  - Alopecia [Not Recovered/Not Resolved]
  - Product tampering [Unknown]
